FAERS Safety Report 19372810 (Version 1)
Quarter: 2021Q2

REPORT INFORMATION
  Report Type: Spontaneous
  Country: US (occurrence: US)
  Receive Date: 20210603
  Receipt Date: 20210603
  Transmission Date: 20210717
  Serious: Yes (Hospitalization)
  Sender: FDA-Public Use
  Company Number: None

PATIENT
  Age: 34 Year
  Sex: Female
  Weight: 42.3 kg

DRUGS (7)
  1. INJECTAFER [Suspect]
     Active Substance: FERRIC CARBOXYMALTOSE
     Indication: IRON DEFICIENCY
     Dosage: ?          OTHER FREQUENCY:ONE TIME INFUSION;?
     Route: 042
     Dates: start: 20210512, end: 20210512
  2. DHEA [Concomitant]
     Active Substance: PRASTERONE
  3. BELATACEPT [Concomitant]
     Active Substance: BELATACEPT
  4. PHOSPHA 250 NEUTRAL [Concomitant]
     Active Substance: POTASSIUM PHOSPHATE, MONOBASIC\SODIUM PHOSPHATE, DIBASIC, ANHYDROUS\SODIUM PHOSPHATE, MONOBASIC, MONOHYDRATE
  5. NORCO [Concomitant]
     Active Substance: ACETAMINOPHEN\HYDROCODONE BITARTRATE
  6. PREDNISONE. [Concomitant]
     Active Substance: PREDNISONE
  7. VITAMIN B COMPLEX [Concomitant]
     Active Substance: CYANOCOBALAMIN\DEXPANTHENOL\NIACINAMIDE\PYRIDOXINE HYDROCHLORIDE\RIBOFLAVIN 5^-PHOSPHATE SODIUM\THIAMINE HYDROCHLORIDE\VITAMIN B COMPLEX

REACTIONS (5)
  - Asthenia [None]
  - Tachycardia [None]
  - Loss of personal independence in daily activities [None]
  - Dyspnoea [None]
  - Blood phosphorus decreased [None]

NARRATIVE: CASE EVENT DATE: 20210521
